FAERS Safety Report 4310921-6 (Version None)
Quarter: 2004Q1

REPORT INFORMATION
  Report Type: 
  Country: None (occurrence: None)
  Receive Date: 20040303
  Receipt Date: 20040220
  Transmission Date: 20041129
  Serious: Yes (Other)
  Sender: FDA-Public Use
  Company Number: 2004011300

PATIENT
  Age: 79 Year
  Sex: Female
  Weight: 68.0396 kg

DRUGS (5)
  1. NEOSPORIN [Suspect]
     Indication: LIMB INJURY
     Dosage: A SMALL AMOUNT, ORAL
     Route: 048
     Dates: start: 20020101, end: 20020101
  2. NEOSPORIN [Suspect]
     Indication: LIMB INJURY
     Dosage: A SMALL AMOUNT, ORAL
     Route: 048
     Dates: start: 20040218, end: 20040218
  3. LEVOTHYROXINE SODIUM [Concomitant]
  4. MELOXICAM (MELOXICAM) [Concomitant]
  5. LANSOPRAZOLE [Concomitant]

REACTIONS (3)
  - ACCIDENTAL EXPOSURE [None]
  - OROPHARYNGEAL SWELLING [None]
  - SWOLLEN TONGUE [None]
